FAERS Safety Report 7832836-9 (Version None)
Quarter: 2011Q4

REPORT INFORMATION
  Report Type: 
  Country: None (occurrence: None)
  Receive Date: 20111024
  Receipt Date: 20111013
  Transmission Date: 20120403
  Serious: No
  Sender: FDA-Public Use
  Company Number: US-BIOGENIDEC-2011BI039124

PATIENT
  Sex: Male

DRUGS (2)
  1. AVONEX [Suspect]
     Route: 030
     Dates: start: 20030101
  2. AVONEX [Suspect]
     Indication: MULTIPLE SCLEROSIS
     Route: 030
     Dates: start: 19970101, end: 20030101

REACTIONS (5)
  - THERMOANAESTHESIA [None]
  - CENTRAL NERVOUS SYSTEM LESION [None]
  - COORDINATION ABNORMAL [None]
  - DIPLOPIA [None]
  - HYPOAESTHESIA [None]
